FAERS Safety Report 9652887 (Version 1)
Quarter: 2013Q4

REPORT INFORMATION
  Report Type: Spontaneous
  Country: US (occurrence: None)
  Receive Date: 20131028
  Receipt Date: 20131028
  Transmission Date: 20140711
  Serious: Yes (Disabling)
  Sender: FDA-Public Use
  Company Number: None

PATIENT
  Age: 34 Year
  Sex: Male
  Weight: 83.92 kg

DRUGS (1)
  1. FINASTERIDE [Suspect]
     Indication: ANDROGENETIC ALOPECIA
     Route: 048

REACTIONS (6)
  - Vision blurred [None]
  - Dry eye [None]
  - Visual acuity reduced [None]
  - Dry skin [None]
  - Tinnitus [None]
  - Cognitive disorder [None]
